FAERS Safety Report 8822672 (Version 2)
Quarter: 2013Q3

REPORT INFORMATION
  Report Type: Spontaneous
  Country: CH (occurrence: CH)
  Receive Date: 20121003
  Receipt Date: 20130923
  Transmission Date: 20140515
  Serious: Yes (Life-Threatening, Hospitalization, Other)
  Sender: FDA-Public Use
  Company Number: CH-009507513-1209CHE002520

PATIENT
  Age: 42 Year
  Sex: Female

DRUGS (3)
  1. REMERON [Suspect]
     Dosage: UP TO 40 UNIT, ONCE
     Route: 048
     Dates: start: 20120505, end: 20120505
  2. LORAZEPAM [Suspect]
     Dosage: UP TO 20 UNIT, ONCE
     Route: 048
     Dates: start: 20120505, end: 20120505
  3. IBUPROFEN [Suspect]
     Dosage: ABOUT 10 UNIT, ONCE
     Route: 048
     Dates: start: 20120505, end: 20120505

REACTIONS (12)
  - Electrocardiogram QT prolonged [Recovered/Resolved]
  - Coma [Recovered/Resolved]
  - Rhabdomyolysis [Not Recovered/Not Resolved]
  - Muscle injury [Not Recovered/Not Resolved]
  - Metabolic acidosis [Recovered/Resolved]
  - Pneumonia aspiration [Recovered/Resolved]
  - Hyperkalaemia [Recovered/Resolved]
  - Compartment syndrome [Unknown]
  - Poisoning [Recovered/Resolved]
  - Suicide attempt [Recovered/Resolved]
  - Surgery [Unknown]
  - Intentional overdose [Recovered/Resolved]
